FAERS Safety Report 18438786 (Version 1)
Quarter: 2020Q4

REPORT INFORMATION
  Report Type: Spontaneous
  Country: AU (occurrence: AU)
  Receive Date: 20201028
  Receipt Date: 20201028
  Transmission Date: 20210114
  Serious: Yes (Other)
  Sender: FDA-Public Use
  Company Number: AU-ANIPHARMA-2020-AU-000247

PATIENT
  Age: 52 Year
  Sex: Female

DRUGS (5)
  1. PROGYNOVA [Concomitant]
     Active Substance: ESTRADIOL VALERATE
     Dosage: 2 MG DAILY
     Route: 065
  2. ADDOS XR [Suspect]
     Active Substance: NIFEDIPINE
     Dosage: 30 MG DAILY
     Dates: start: 20200922, end: 20200925
  3. LEVOTHYROXINE. [Concomitant]
     Active Substance: LEVOTHYROXINE
     Dosage: 50 MG DAILY
     Route: 065
  4. ATENOLOL. [Concomitant]
     Active Substance: ATENOLOL
     Dosage: 2 DF DAILY
     Route: 065
     Dates: start: 20200925
  5. CANDESARTAN CILEXETIL. [Suspect]
     Active Substance: CANDESARTAN CILEXETIL
     Indication: HYPERTENSION
     Dosage: 32 MG DAILY
     Route: 048

REACTIONS (5)
  - Feeling abnormal [Unknown]
  - Rash [Unknown]
  - Flushing [Unknown]
  - Anxiety [Unknown]
  - Nausea [Unknown]

NARRATIVE: CASE EVENT DATE: 20200922
